FAERS Safety Report 25148483 (Version 1)
Quarter: 2025Q2

REPORT INFORMATION
  Report Type: Spontaneous
  Country: AR (occurrence: AR)
  Receive Date: 20250402
  Receipt Date: 20250402
  Transmission Date: 20250716
  Serious: Yes (Death, Other)
  Sender: ALKEM
  Company Number: AR-ALKEM LABORATORIES LIMITED-AR-ALKEM-2025-03016

PATIENT
  Age: 9 Year
  Sex: Male

DRUGS (12)
  1. MYCOPHENOLATE MOFETIL [Suspect]
     Active Substance: MYCOPHENOLATE MOFETIL
     Indication: Immunosuppressant drug therapy
     Route: 065
  2. MYCOPHENOLATE MOFETIL [Suspect]
     Active Substance: MYCOPHENOLATE MOFETIL
     Indication: Evans syndrome
  3. MYCOPHENOLATE MOFETIL [Suspect]
     Active Substance: MYCOPHENOLATE MOFETIL
     Indication: Interstitial lung disease
  4. MYCOPHENOLATE MOFETIL [Suspect]
     Active Substance: MYCOPHENOLATE MOFETIL
     Indication: Nephrotic syndrome
  5. SIROLIMUS [Suspect]
     Active Substance: SIROLIMUS
     Indication: Immunosuppressant drug therapy
     Route: 065
  6. SIROLIMUS [Suspect]
     Active Substance: SIROLIMUS
     Indication: Interstitial lung disease
  7. SIROLIMUS [Suspect]
     Active Substance: SIROLIMUS
     Indication: Evans syndrome
  8. SIROLIMUS [Suspect]
     Active Substance: SIROLIMUS
     Indication: Nephrotic syndrome
  9. RITUXIMAB [Suspect]
     Active Substance: RITUXIMAB
     Indication: Immunosuppressant drug therapy
     Route: 065
  10. RITUXIMAB [Suspect]
     Active Substance: RITUXIMAB
     Indication: Interstitial lung disease
  11. RITUXIMAB [Suspect]
     Active Substance: RITUXIMAB
     Indication: Evans syndrome
  12. RITUXIMAB [Suspect]
     Active Substance: RITUXIMAB
     Indication: Nephrotic syndrome

REACTIONS (6)
  - Respiratory failure [Fatal]
  - Transplant failure [Fatal]
  - Adenovirus infection [Fatal]
  - Epstein-Barr viraemia [Unknown]
  - Otitis media acute [Unknown]
  - Therapy partial responder [Unknown]
